FAERS Safety Report 12595979 (Version 1)
Quarter: 2016Q3

REPORT INFORMATION
  Report Type: Spontaneous
  Country: US (occurrence: US)
  Receive Date: 20160726
  Receipt Date: 20160726
  Transmission Date: 20161109
  Serious: No
  Sender: FDA-Public Use
  Company Number: US-MEDA-2016070101

PATIENT
  Sex: Female

DRUGS (1)
  1. NABILONE 250 MCG [Suspect]
     Active Substance: NABILONE
     Route: 048

REACTIONS (1)
  - Hallucination [Unknown]
